FAERS Safety Report 23438329 (Version 2)
Quarter: 2024Q3

REPORT INFORMATION
  Report Type: Spontaneous
  Country: US (occurrence: US)
  Receive Date: 20240124
  Receipt Date: 20240702
  Transmission Date: 20241016
  Serious: Yes (Other)
  Sender: TEVA
  Company Number: US-TEVA-VS-3144942

PATIENT
  Age: 73 Year
  Sex: Female
  Weight: 50.35 kg

DRUGS (1)
  1. ALBUTEROL SULFATE [Suspect]
     Active Substance: ALBUTEROL SULFATE
     Indication: Asthma
     Dosage: 2 PUFFS EVERY 4 HOURS AS NEEDED FOR 30 DAYS, FORM STRENGTH: 90 MCG/DOSE
     Route: 055

REACTIONS (6)
  - Asthma [Unknown]
  - Exposure to allergen [Unknown]
  - Drug effect less than expected [Unknown]
  - Weight decreased [Unknown]
  - Inappropriate schedule of product administration [Unknown]
  - Bronchospasm [Unknown]

NARRATIVE: CASE EVENT DATE: 20240101
